FAERS Safety Report 19770153 (Version 3)
Quarter: 2023Q2

REPORT INFORMATION
  Report Type: Spontaneous
  Country: NL (occurrence: NL)
  Receive Date: 20210831
  Receipt Date: 20230410
  Transmission Date: 20230721
  Serious: Yes (Hospitalization)
  Sender: FDA-Public Use
  Company Number: NL-MYLANLABS-2021M1057426

PATIENT
  Age: 61 Year
  Sex: Male

DRUGS (8)
  1. BUMETANIDE [Suspect]
     Active Substance: BUMETANIDE
     Indication: Pulmonary hypertension
     Dosage: 7.5 MILLIGRAM, QD, MAXIMUM TOLERATED DAILY DOSE
     Route: 065
     Dates: start: 201905
  2. BUMETANIDE [Suspect]
     Active Substance: BUMETANIDE
     Indication: Diuretic therapy
     Dosage: UNK, DOSE REDUCED
     Route: 065
     Dates: start: 201905
  3. EPLERENONE [Suspect]
     Active Substance: EPLERENONE
     Indication: Pulmonary hypertension
     Dosage: 50 MILLIGRAM, QD
     Route: 065
     Dates: start: 201905
  4. EPLERENONE [Suspect]
     Active Substance: EPLERENONE
     Indication: Cardiac failure
     Dosage: UNK, DOSE REDUCED
     Route: 065
     Dates: start: 201905
  5. SILDENAFIL [Suspect]
     Active Substance: SILDENAFIL
     Indication: Pulmonary hypertension
     Dosage: 60 MILLIGRAM, QD, AT A MAXIMUM TOLERATED DAILY DOSE
     Route: 065
     Dates: start: 201905
  6. SILDENAFIL [Suspect]
     Active Substance: SILDENAFIL
     Dosage: 60 MILLIGRAM
     Route: 065
  7. SACUBITRIL\VALSARTAN [Suspect]
     Active Substance: SACUBITRIL\VALSARTAN
     Indication: Pulmonary hypertension
     Dosage: 1 DOSAGE FORM, QD, AT A MAXIMUM TOLERATED DAILY DOSE
     Route: 065
     Dates: start: 201905
  8. SACUBITRIL\VALSARTAN [Suspect]
     Active Substance: SACUBITRIL\VALSARTAN
     Dosage: UNK, DOSE REDUCED
     Route: 065
     Dates: start: 201905

REACTIONS (2)
  - Drug ineffective [Unknown]
  - Off label use [Unknown]
